FAERS Safety Report 10641421 (Version 1)
Quarter: 2014Q4

REPORT INFORMATION
  Report Type: Report from Study
  Country: BR (occurrence: BR)
  Receive Date: 20141209
  Receipt Date: 20141209
  Transmission Date: 20150529
  Serious: Yes (Other)
  Sender: FDA-Public Use
  Company Number: BR-ABBVIE-14K-020-1316607-00

PATIENT
  Age: 28 Year
  Sex: Female
  Weight: 60 kg

DRUGS (9)
  1. INDOMETACIN/FAMOTIDINE [Concomitant]
     Indication: ANKYLOSING SPONDYLITIS
     Dosage: FORM STRENGTH: 10MG INDOMETACIN+ 15MG FAMOTIDINE
     Route: 048
     Dates: start: 201410
  2. HUMIRA [Suspect]
     Active Substance: ADALIMUMAB
     Indication: ANKYLOSING SPONDYLITIS
     Route: 058
     Dates: start: 20140201
  3. SULFASALAZINE. [Concomitant]
     Active Substance: SULFASALAZINE
     Indication: ANKYLOSING SPONDYLITIS
     Dosage: 2 TABLETS AT LUNCH AND 2 TABLETS AT DINNER
     Route: 048
     Dates: start: 201410
  4. VIMOVO [Concomitant]
     Active Substance: ESOMEPRAZOLE MAGNESIUM\NAPROXEN
     Indication: GASTRIC DISORDER
  5. VIMOVO [Concomitant]
     Active Substance: ESOMEPRAZOLE MAGNESIUM\NAPROXEN
     Indication: PROPHYLAXIS
     Route: 048
     Dates: start: 2013
  6. LYRICA [Concomitant]
     Active Substance: PREGABALIN
     Indication: ANKYLOSING SPONDYLITIS
     Route: 048
     Dates: start: 2013
  7. TRAMAL [Concomitant]
     Active Substance: TRAMADOL
     Indication: PAIN
     Route: 048
     Dates: start: 2011
  8. GABAPENTIN. [Concomitant]
     Active Substance: GABAPENTIN
     Indication: ANTIDEPRESSANT THERAPY
     Route: 048
     Dates: start: 201404
  9. CYMBALTA [Concomitant]
     Active Substance: DULOXETINE HYDROCHLORIDE
     Indication: ANTIDEPRESSANT THERAPY
     Route: 048
     Dates: start: 2013

REACTIONS (5)
  - Attention deficit/hyperactivity disorder [Recovered/Resolved]
  - Seizure [Recovered/Resolved]
  - Injection site vesicles [Recovered/Resolved]
  - Gliosis [Unknown]
  - Hypersensitivity [Unknown]

NARRATIVE: CASE EVENT DATE: 20140201
